FAERS Safety Report 7442694-2 (Version None)
Quarter: 2011Q2

REPORT INFORMATION
  Report Type: 
  Country: None (occurrence: None)
  Receive Date: 20110428
  Receipt Date: 20110414
  Transmission Date: 20111010
  Serious: Yes (Other)
  Sender: FDA-Public Use
  Company Number: DE-JNJFOC-20110408577

PATIENT
  Sex: Female

DRUGS (2)
  1. REGAINE FOR WOMEN [Suspect]
     Route: 061
  2. REGAINE FOR WOMEN [Suspect]
     Indication: PRODUCT USED FOR UNKNOWN INDICATION
     Route: 061

REACTIONS (3)
  - OVARIAN CYST [None]
  - MENORRHAGIA [None]
  - PRURITUS [None]
